FAERS Safety Report 16064943 (Version 1)
Quarter: 2019Q1

REPORT INFORMATION
  Report Type: Spontaneous
  Country: IT (occurrence: IT)
  Receive Date: 20190312
  Receipt Date: 20190312
  Transmission Date: 20190418
  Serious: Yes (Other)
  Sender: FDA-Public Use
  Company Number: IT-BAXTER-2019BAX004530

PATIENT
  Age: 31 Year
  Sex: Male

DRUGS (12)
  1. HOLOXAN [Suspect]
     Active Substance: IFOSFAMIDE
     Indication: EWING^S SARCOMA
     Dosage: 6 CYCLICAL,DAY 1- 5 EVERY 21 DAYS
     Route: 042
     Dates: start: 2016
  2. VINCRISTINE [Suspect]
     Active Substance: VINCRISTINE
     Indication: METASTASES TO LIVER
     Dosage: 5 CYCLICAL, REDUCED THE DOSE OF 25%
     Route: 042
  3. VINCRISTINE [Suspect]
     Active Substance: VINCRISTINE
     Indication: EWING^S SARCOMA
     Dosage: DAY 1 EVERY 21 DAYS
     Route: 042
     Dates: start: 201606
  4. DOXORUBICIN [Suspect]
     Active Substance: DOXORUBICIN
     Indication: METASTASES TO LIVER
     Dosage: DAY 1 EVERY 21 DAYS
     Route: 042
     Dates: start: 201606
  5. ENDOXAN BAXTER [Suspect]
     Active Substance: CYCLOPHOSPHAMIDE
     Indication: METASTASES TO LIVER
     Dosage: DAY 1 EVERY 21 DAYS
     Route: 042
     Dates: start: 201606
  6. ETOPOSIDE. [Suspect]
     Active Substance: ETOPOSIDE
     Indication: EWING^S SARCOMA
  7. DOXORUBICIN [Suspect]
     Active Substance: DOXORUBICIN
     Indication: EWING^S SARCOMA
     Dosage: 5 CYCLICAL, REDUCED THE DOSE OF 25%
     Route: 042
     Dates: start: 201606
  8. ENDOXAN BAXTER [Suspect]
     Active Substance: CYCLOPHOSPHAMIDE
     Indication: EWING^S SARCOMA
     Dosage: 5 CYCLICAL, REDUCED THE DOSE OF 25%
     Route: 042
     Dates: start: 201606
  9. UROMITEXAN 400 MG/ 4ML [Suspect]
     Active Substance: MESNA
     Indication: METASTASES TO LIVER
  10. UROMITEXAN 400 MG/ 4ML [Suspect]
     Active Substance: MESNA
     Indication: EWING^S SARCOMA
     Dosage: 6 CYCLICAL,DAY 1-5 EVERY 21 DAYS
     Route: 042
     Dates: start: 2016
  11. HOLOXAN [Suspect]
     Active Substance: IFOSFAMIDE
     Indication: METASTASES TO LIVER
  12. ETOPOSIDE. [Suspect]
     Active Substance: ETOPOSIDE
     Indication: METASTASES TO LIVER
     Dosage: 6 CYCLES,DAY 1-5 EVERY 21 DAYS
     Route: 042
     Dates: start: 2016

REACTIONS (3)
  - Febrile neutropenia [Recovered/Resolved]
  - Nausea [Unknown]
  - Vomiting [Unknown]

NARRATIVE: CASE EVENT DATE: 2016
